FAERS Safety Report 11514598 (Version 3)
Quarter: 2015Q4

REPORT INFORMATION
  Report Type: Report from Study
  Country: DE (occurrence: CL)
  Receive Date: 20150916
  Receipt Date: 20151104
  Transmission Date: 20160304
  Serious: Yes (Other)
  Sender: FDA-Public Use
  Company Number: DE-ACTELION-A-NJ2015-124021

PATIENT
  Age: 43 Year
  Sex: Female

DRUGS (9)
  1. CHLORAMPHENICOL [Concomitant]
     Active Substance: CHLORAMPHENICOL
     Dosage: UNK
  2. OMEPRAZOLE. [Concomitant]
     Active Substance: OMEPRAZOLE
  3. LACTULOSE. [Concomitant]
     Active Substance: LACTULOSE
     Dosage: UNK
  4. VENTAVIS [Suspect]
     Active Substance: ILOPROST
     Indication: PULMONARY HYPERTENSION
     Dosage: 1 DF, 7/D
     Route: 055
     Dates: start: 20150805
  5. SPIRONOLACTONE. [Concomitant]
     Active Substance: SPIRONOLACTONE
  6. FUROSEMIDE. [Concomitant]
     Active Substance: FUROSEMIDE
     Dosage: UNK
  7. VITAMIN C [Concomitant]
     Active Substance: ASCORBIC ACID
     Dosage: 100 MG, UNK
  8. BOSENTAN [Concomitant]
     Active Substance: BOSENTAN
     Dosage: UNK
  9. SILDENAFIL. [Concomitant]
     Active Substance: SILDENAFIL
     Dosage: UNK

REACTIONS (13)
  - Pharyngitis [Recovering/Resolving]
  - Dry mouth [Not Recovered/Not Resolved]
  - Throat irritation [Recovered/Resolved]
  - Myalgia [Recovered/Resolved]
  - Pulmonary hypertension [Unknown]
  - Viral pharyngitis [Recovered/Resolved]
  - Chest pain [Recovered/Resolved]
  - Throat irritation [Not Recovered/Not Resolved]
  - Erythema [Not Recovered/Not Resolved]
  - Oropharyngeal pain [Recovering/Resolving]
  - Depressed mood [Unknown]
  - Hypersensitivity [Not Recovered/Not Resolved]
  - Abasia [Unknown]

NARRATIVE: CASE EVENT DATE: 20150905
